FAERS Safety Report 12852791 (Version 3)
Quarter: 2016Q4

REPORT INFORMATION
  Report Type: Spontaneous
  Country: IT (occurrence: IT)
  Receive Date: 20161017
  Receipt Date: 20161107
  Transmission Date: 20170207
  Serious: Yes (Other)
  Sender: FDA-Public Use
  Company Number: IT-PFIZER INC-2016476346

PATIENT
  Age: 83 Year
  Sex: Female
  Weight: 62 kg

DRUGS (5)
  1. LASIX [Concomitant]
     Active Substance: FUROSEMIDE
     Dosage: 20 MG, UNK
     Route: 042
  2. EPOETIN ZETA [Concomitant]
     Active Substance: ERYTHROPOIETIN
     Dosage: 12000 IU, UNK
     Route: 058
  3. PANTORC [Suspect]
     Active Substance: PANTOPRAZOLE SODIUM
     Indication: PROPHYLAXIS AGAINST GASTROINTESTINAL ULCER
     Dosage: 40 MG, 1X/DAY
     Route: 048
     Dates: start: 20160919, end: 20161004
  4. FERLIXIT [Suspect]
     Active Substance: SODIUM FERRIC GLUCONATE COMPLEX
     Indication: IRON DEFICIENCY ANAEMIA
     Dosage: UNK, 1X/DAY
     Route: 048
     Dates: start: 20160922, end: 20161002
  5. ALLOPURINOL. [Suspect]
     Active Substance: ALLOPURINOL
     Indication: HYPERURICAEMIA
     Dosage: UNK, 1X/DAY
     Route: 048
     Dates: start: 20160929, end: 20161004

REACTIONS (1)
  - Erythrodermic psoriasis [Recovering/Resolving]

NARRATIVE: CASE EVENT DATE: 20161004
